FAERS Safety Report 8593930-0 (Version None)
Quarter: 2012Q3

REPORT INFORMATION
  Report Type: 
  Country: None (occurrence: None)
  Receive Date: 20120814
  Receipt Date: 20120730
  Transmission Date: 20120928
  Serious: No
  Sender: FDA-Public Use
  Company Number: US-ASTRAZENECA-2012SE53917

PATIENT
  Sex: Female

DRUGS (3)
  1. NEXIUM [Suspect]
     Indication: GASTROOESOPHAGEAL REFLUX DISEASE
     Route: 048
     Dates: start: 20120423, end: 20120505
  2. OMEPRAZOLE [Suspect]
     Indication: GASTROOESOPHAGEAL REFLUX DISEASE
     Route: 048
     Dates: start: 20120508, end: 20120512
  3. NEXIUM [Suspect]
     Dosage: EVERY OTHER DAY
     Route: 048
     Dates: start: 20120520, end: 20120705

REACTIONS (10)
  - DIZZINESS [None]
  - OFF LABEL USE [None]
  - NASAL DISCHARGE DISCOLOURATION [None]
  - ORAL DISCHARGE [None]
  - ABDOMINAL PAIN [None]
  - DYSPEPSIA [None]
  - DRY MOUTH [None]
  - OROPHARYNGEAL PAIN [None]
  - BLOODY DISCHARGE [None]
  - FLATULENCE [None]
